FAERS Safety Report 15407673 (Version 2)
Quarter: 2018Q3

REPORT INFORMATION
  Report Type: Report from Study
  Country: GB (occurrence: GB)
  Receive Date: 20180920
  Receipt Date: 20180928
  Transmission Date: 20181010
  Serious: Yes (Other)
  Sender: FDA-Public Use
  Company Number: GB-PFIZER INC-2018369400

PATIENT
  Age: 57 Year
  Sex: Female
  Weight: 92.8 kg

DRUGS (15)
  1. AVELUMAB [Suspect]
     Active Substance: AVELUMAB
     Indication: OVARIAN CANCER
     Dosage: 920 MG, EVERY 3 WEEKS
     Route: 042
     Dates: start: 20180130, end: 20180529
  2. ATORVASTATIN [Concomitant]
     Active Substance: ATORVASTATIN
     Indication: HYPERCHOLESTEROLAEMIA
     Dosage: 40 MG, 1X/DAY(OD)
     Route: 048
     Dates: start: 20141201
  3. ONDANSETRON [Concomitant]
     Active Substance: ONDANSETRON
     Indication: PREMEDICATION
     Dosage: 8 MG, STAT
     Route: 042
     Dates: start: 20180130, end: 20180529
  4. OMEPRAZOLE. [Concomitant]
     Active Substance: OMEPRAZOLE
     Indication: ABDOMINAL PAIN UPPER
     Dosage: 20 MG, 1X/DAY(OD)
     Route: 048
     Dates: start: 20061220
  5. AMLODIPINE [Concomitant]
     Active Substance: AMLODIPINE BESYLATE
     Indication: HYPERTENSION
     Dosage: 10 MG, 1X/DAY(OD)
     Route: 048
     Dates: start: 20170110
  6. CHLORPHENIRAMINE. [Concomitant]
     Active Substance: CHLORPHENIRAMINE
     Indication: PREMEDICATION
     Dosage: 10 MG, STAT
     Route: 042
     Dates: start: 20180130, end: 20180529
  7. RANITIDINE. [Concomitant]
     Active Substance: RANITIDINE
     Indication: PREMEDICATION
     Dosage: 50 MG, STAT
     Route: 042
     Dates: start: 20180130, end: 20180529
  8. CLEXANE [Concomitant]
     Active Substance: ENOXAPARIN SODIUM
     Indication: PULMONARY EMBOLISM
     Dosage: 140 MG, 1X/DAY(OD)
     Route: 058
     Dates: start: 20180322
  9. SITAGLIPTIN [Concomitant]
     Active Substance: SITAGLIPTIN
     Indication: TYPE 2 DIABETES MELLITUS
     Dosage: 100 MG, 1X/DAY(OD)
     Route: 048
     Dates: start: 20140930
  10. PACLITAXEL. [Suspect]
     Active Substance: PACLITAXEL
     Indication: OVARIAN CANCER
     Dosage: 264 MG, EVERY 3 WEEKS
     Route: 042
     Dates: start: 20180130, end: 20180529
  11. DEXAMETHASONE. [Concomitant]
     Active Substance: DEXAMETHASONE
     Indication: PREMEDICATION
     Dosage: 20 MG, STAT
     Route: 042
     Dates: start: 20180130, end: 20180529
  12. DEXAMETHASONE. [Concomitant]
     Active Substance: DEXAMETHASONE
     Indication: TOXICITY TO VARIOUS AGENTS
     Dosage: 4 MG, 2X/DAY(BID) PER 317 POSE CHEMO
     Route: 048
     Dates: start: 20180130, end: 20180601
  13. METFORMIN [Concomitant]
     Active Substance: METFORMIN HYDROCHLORIDE
     Indication: TYPE 2 DIABETES MELLITUS
     Dosage: 1000 MG, 2X/DAY
     Route: 048
     Dates: start: 20140924
  14. CARBOPLATIN. [Suspect]
     Active Substance: CARBOPLATIN
     Indication: OVARIAN CANCER
     Dosage: 715 MG, EVERY 3 WEEKS
     Route: 042
     Dates: start: 20180130, end: 20180529
  15. DOMPERIDONE [Concomitant]
     Active Substance: DOMPERIDONE
     Indication: TOXICITY TO VARIOUS AGENTS
     Dosage: 10 MG, 3X/DAY(TDS)
     Route: 048
     Dates: start: 20180130

REACTIONS (1)
  - Sarcoidosis [Not Recovered/Not Resolved]

NARRATIVE: CASE EVENT DATE: 20180611
